FAERS Safety Report 10349874 (Version 12)
Quarter: 2018Q2

REPORT INFORMATION
  Report Type: Report from Study
  Country: JP (occurrence: JP)
  Receive Date: 20140730
  Receipt Date: 20180612
  Transmission Date: 20180711
  Serious: Yes (Hospitalization, Other)
  Sender: FDA-Public Use
  Company Number: JP-ASTELLAS-2013JP007211

PATIENT
  Age: 62 Year
  Sex: Female
  Weight: 53 kg

DRUGS (74)
  1. TACROLIMUS. [Interacting]
     Active Substance: TACROLIMUS
     Route: 048
     Dates: start: 20121210, end: 20150331
  2. TACROLIMUS. [Interacting]
     Active Substance: TACROLIMUS
     Route: 048
     Dates: start: 20150401, end: 20151208
  3. PREDONINE [Suspect]
     Active Substance: PREDNISOLONE
     Indication: LUPUS NEPHRITIS
     Route: 048
     Dates: start: 20080123, end: 20080318
  4. PREDONINE [Suspect]
     Active Substance: PREDNISOLONE
     Indication: PYREXIA
     Route: 048
     Dates: start: 20080512, end: 20080916
  5. PREDONINE [Suspect]
     Active Substance: PREDNISOLONE
     Route: 048
     Dates: start: 20090423, end: 20090722
  6. PREDONINE [Suspect]
     Active Substance: PREDNISOLONE
     Route: 048
     Dates: start: 20101028, end: 20110126
  7. PREDONINE [Suspect]
     Active Substance: PREDNISOLONE
     Route: 048
     Dates: start: 20120704, end: 20120724
  8. PREDNISOLONE SODIUM SUCCINATE [Suspect]
     Active Substance: PREDNISOLONE SODIUM SUCCINATE
     Indication: LUPUS NEPHRITIS
     Route: 065
     Dates: start: 20120915, end: 20120917
  9. BAKTAR [Suspect]
     Active Substance: SULFAMETHOXAZOLE\TRIMETHOPRIM
     Indication: PNEUMONIA
     Route: 048
     Dates: start: 20130321, end: 20140114
  10. LIPIDIL [Concomitant]
     Active Substance: FENOFIBRATE
     Indication: HYPERLIPIDAEMIA
     Route: 048
     Dates: start: 20131120
  11. CRAVIT [Concomitant]
     Active Substance: LEVOFLOXACIN
     Indication: PYELONEPHRITIS
     Route: 065
     Dates: start: 20160915, end: 20160924
  12. TACROLIMUS. [Interacting]
     Active Substance: TACROLIMUS
     Indication: LUPUS NEPHRITIS
     Route: 048
     Dates: start: 20080123, end: 20120909
  13. TACROLIMUS. [Interacting]
     Active Substance: TACROLIMUS
     Route: 048
     Dates: start: 20120921, end: 20121104
  14. PREDONINE [Suspect]
     Active Substance: PREDNISOLONE
     Route: 048
     Dates: start: 20081119, end: 20090128
  15. PREDONINE [Suspect]
     Active Substance: PREDNISOLONE
     Route: 048
     Dates: start: 20090723, end: 20100428
  16. PREDONINE [Suspect]
     Active Substance: PREDNISOLONE
     Route: 048
     Dates: start: 20121026, end: 20121101
  17. PREDONINE [Suspect]
     Active Substance: PREDNISOLONE
     Route: 048
     Dates: start: 20121227, end: 20130123
  18. PREDONINE [Suspect]
     Active Substance: PREDNISOLONE
     Route: 048
     Dates: start: 20131004, end: 20140211
  19. SOLU-CORTEF [Suspect]
     Active Substance: HYDROCORTISONE SODIUM SUCCINATE
     Route: 065
     Dates: start: 20120928, end: 20121004
  20. HUMAN NORMAL IMMUNOGLOBULIN [Concomitant]
     Active Substance: HUMAN IMMUNOGLOBULIN G
     Indication: NOCARDIOSIS
     Route: 065
     Dates: start: 20120911, end: 20120913
  21. ROZEREM [Concomitant]
     Active Substance: RAMELTEON
     Indication: INSOMNIA
     Route: 048
     Dates: start: 20130318
  22. LIVALO [Concomitant]
     Active Substance: PITAVASTATIN CALCIUM
     Indication: HYPERLIPIDAEMIA
     Route: 048
     Dates: start: 20130318, end: 20131119
  23. BETANIS [Concomitant]
     Active Substance: MIRABEGRON
     Indication: URGE INCONTINENCE
     Route: 048
     Dates: start: 20170416
  24. PREDONINE [Suspect]
     Active Substance: PREDNISOLONE
     Route: 048
     Dates: start: 20090129, end: 20090422
  25. PREDONINE [Suspect]
     Active Substance: PREDNISOLONE
     Route: 048
     Dates: start: 20100429, end: 20101027
  26. PREDONINE [Suspect]
     Active Substance: PREDNISOLONE
     Route: 048
     Dates: start: 20110127, end: 20110728
  27. PREDONINE [Suspect]
     Active Substance: PREDNISOLONE
     Route: 048
     Dates: start: 20120918, end: 20121025
  28. PREDONINE [Suspect]
     Active Substance: PREDNISOLONE
     Route: 048
     Dates: start: 20160120
  29. BAKTAR [Suspect]
     Active Substance: SULFAMETHOXAZOLE\TRIMETHOPRIM
     Indication: PROPHYLAXIS
     Route: 048
     Dates: start: 20140115, end: 20150513
  30. GASTER [Concomitant]
     Active Substance: FAMOTIDINE
     Indication: PROPHYLAXIS
     Route: 048
     Dates: end: 20091020
  31. EVISTA [Concomitant]
     Active Substance: RALOXIFENE HYDROCHLORIDE
     Indication: PROPHYLAXIS
     Route: 048
     Dates: end: 20120913
  32. ARTIST [Concomitant]
     Active Substance: CARVEDILOL
     Indication: PRODUCT USED FOR UNKNOWN INDICATION
     Route: 048
     Dates: start: 20090129, end: 20120913
  33. TACROLIMUS. [Interacting]
     Active Substance: TACROLIMUS
     Route: 048
     Dates: start: 20121105, end: 20121209
  34. FUNGUARD [Suspect]
     Active Substance: MICAFUNGIN SODIUM
     Indication: NOCARDIOSIS
     Route: 065
     Dates: start: 20120911, end: 20120920
  35. PREDONINE [Suspect]
     Active Substance: PREDNISOLONE
     Route: 048
     Dates: start: 20130124, end: 20130220
  36. PREDONINE [Suspect]
     Active Substance: PREDNISOLONE
     Route: 048
     Dates: start: 20150121, end: 20150915
  37. PREDONINE [Suspect]
     Active Substance: PREDNISOLONE
     Route: 048
     Dates: start: 20151028, end: 20160119
  38. BAKTAR [Suspect]
     Active Substance: SULFAMETHOXAZOLE\TRIMETHOPRIM
     Route: 048
     Dates: start: 20150514
  39. MEROPEN                            /01250501/ [Suspect]
     Active Substance: MEROPENEM
     Indication: NOCARDIOSIS
     Route: 065
     Dates: start: 20120910, end: 20120913
  40. LIPOVAS                            /00848101/ [Concomitant]
     Active Substance: SIMVASTATIN
     Indication: PRODUCT USED FOR UNKNOWN INDICATION
     Route: 048
     Dates: end: 20100728
  41. HYPEN                              /00340101/ [Concomitant]
     Indication: ARTHRALGIA
     Route: 048
     Dates: start: 20131120, end: 20150331
  42. TACROLIMUS. [Interacting]
     Active Substance: TACROLIMUS
     Route: 048
     Dates: start: 20151209
  43. VFEND [Interacting]
     Active Substance: VORICONAZOLE
     Indication: BRONCHOPULMONARY ASPERGILLOSIS
     Route: 048
     Dates: start: 20121025, end: 20121125
  44. PREDONINE [Suspect]
     Active Substance: PREDNISOLONE
     Indication: DNA ANTIBODY POSITIVE
     Route: 048
     Dates: start: 20080917, end: 20081118
  45. PREDONINE [Suspect]
     Active Substance: PREDNISOLONE
     Route: 048
     Dates: start: 20110729, end: 20120703
  46. PREDONINE [Suspect]
     Active Substance: PREDNISOLONE
     Route: 048
     Dates: start: 20120725, end: 20120828
  47. PREDONINE [Suspect]
     Active Substance: PREDNISOLONE
     Route: 048
     Dates: start: 20120829, end: 20120910
  48. PREDONINE [Suspect]
     Active Substance: PREDNISOLONE
     Route: 048
     Dates: start: 20121102, end: 20121108
  49. PREDONINE [Suspect]
     Active Substance: PREDNISOLONE
     Route: 048
     Dates: start: 20121126, end: 20121226
  50. PREDONINE [Suspect]
     Active Substance: PREDNISOLONE
     Route: 048
     Dates: start: 20130321, end: 20130425
  51. PREDONINE [Suspect]
     Active Substance: PREDNISOLONE
     Route: 048
     Dates: start: 20140416, end: 20150120
  52. PREDONINE [Suspect]
     Active Substance: PREDNISOLONE
     Route: 048
     Dates: start: 20150916, end: 20151027
  53. SOLU-CORTEF [Suspect]
     Active Substance: HYDROCORTISONE SODIUM SUCCINATE
     Route: 065
     Dates: start: 20120919, end: 20120923
  54. VANCOMYCIN                         /00314402/ [Suspect]
     Active Substance: VANCOMYCIN
     Indication: NOCARDIOSIS
     Route: 065
     Dates: start: 20120911, end: 20120920
  55. BLOPRESS [Concomitant]
     Active Substance: CANDESARTAN CILEXETIL
     Indication: PRODUCT USED FOR UNKNOWN INDICATION
     Route: 048
     Dates: end: 20120912
  56. HUMAN NORMAL IMMUNOGLOBULIN [Concomitant]
     Active Substance: HUMAN IMMUNOGLOBULIN G
     Indication: PNEUMONIA
  57. CEFAZOLIN [Concomitant]
     Active Substance: CEFAZOLIN
     Indication: PYELONEPHRITIS
     Route: 065
     Dates: start: 20160913, end: 20160914
  58. PREDONINE [Suspect]
     Active Substance: PREDNISOLONE
     Indication: ARTHRALGIA
     Route: 048
     Dates: start: 20080319, end: 20080511
  59. PREDONINE [Suspect]
     Active Substance: PREDNISOLONE
     Route: 048
     Dates: start: 20121109, end: 20121115
  60. PREDONINE [Suspect]
     Active Substance: PREDNISOLONE
     Route: 048
     Dates: start: 20121116, end: 20121125
  61. PREDONINE [Suspect]
     Active Substance: PREDNISOLONE
     Route: 048
     Dates: start: 20140212, end: 20140415
  62. VANCOMYCIN                         /00314402/ [Suspect]
     Active Substance: VANCOMYCIN
     Indication: PNEUMONIA
  63. ZYLORIC [Concomitant]
     Active Substance: ALLOPURINOL
     Indication: PRODUCT USED FOR UNKNOWN INDICATION
     Route: 048
     Dates: start: 20110127, end: 20120913
  64. TAKEPRON [Concomitant]
     Active Substance: LANSOPRAZOLE
     Indication: PROPHYLAXIS AGAINST GASTROINTESTINAL ULCER
     Route: 048
     Dates: start: 20120924
  65. MIYA-BM [Concomitant]
     Active Substance: CLOSTRIDIUM BUTYRICUM SPORES STRAIN M-55
     Indication: DIARRHOEA
     Route: 048
     Dates: start: 20120924, end: 20131022
  66. BIOFERMIN                          /01617201/ [Concomitant]
     Active Substance: BACILLUS SUBTILIS\LACTOBACILLUS ACIDOPHILUS\STREPTOCOCCUS FAECAIS
     Indication: PROPHYLAXIS
     Route: 048
     Dates: start: 20131021
  67. RHYTHMY [Concomitant]
     Active Substance: RILMAZAFONE HYDROCHLORIDE
     Indication: INSOMNIA
     Route: 048
     Dates: start: 20130318
  68. FUNGUARD [Suspect]
     Active Substance: MICAFUNGIN SODIUM
     Indication: ENTEROBACTER PNEUMONIA
  69. PREDONINE [Suspect]
     Active Substance: PREDNISOLONE
     Route: 048
     Dates: start: 20130221, end: 20130320
  70. BAKTAR [Suspect]
     Active Substance: SULFAMETHOXAZOLE\TRIMETHOPRIM
     Indication: NOCARDIOSIS
     Route: 048
     Dates: start: 20120913, end: 20130320
  71. BIOFERMIN                          /01617201/ [Concomitant]
     Active Substance: BACILLUS SUBTILIS\LACTOBACILLUS ACIDOPHILUS\STREPTOCOCCUS FAECAIS
     Indication: DIARRHOEA
  72. SOLU-CORTEF [Suspect]
     Active Substance: HYDROCORTISONE SODIUM SUCCINATE
     Indication: LUPUS NEPHRITIS
     Route: 065
     Dates: start: 20120911, end: 20120914
  73. MEROPEN                            /01250501/ [Suspect]
     Active Substance: MEROPENEM
     Indication: PNEUMONIA
  74. MEROPENEM. [Concomitant]
     Active Substance: MEROPENEM
     Indication: PYELONEPHRITIS
     Route: 065
     Dates: start: 20160909, end: 20160912

REACTIONS (16)
  - Pneumothorax [Recovering/Resolving]
  - Diarrhoea [Recovering/Resolving]
  - Nocardiosis [Recovered/Resolved]
  - Pyelonephritis [Recovered/Resolved]
  - Insomnia [Not Recovered/Not Resolved]
  - Bronchopulmonary aspergillosis [Recovered/Resolved]
  - Muscular weakness [Recovering/Resolving]
  - DNA antibody positive [Recovered/Resolved]
  - Pyrexia [Recovered/Resolved]
  - Drug interaction [Unknown]
  - Drug level increased [Recovered/Resolved]
  - Hyperlipidaemia [Recovering/Resolving]
  - Renal disorder [Recovering/Resolving]
  - Urge incontinence [Recovering/Resolving]
  - Arthralgia [Recovering/Resolving]
  - Pneumonia [Recovered/Resolved]

NARRATIVE: CASE EVENT DATE: 20120704
